FAERS Safety Report 20651199 (Version 1)
Quarter: 2022Q1

REPORT INFORMATION
  Report Type: Report from Study
  Country: US (occurrence: US)
  Receive Date: 20220329
  Receipt Date: 20220329
  Transmission Date: 20220423
  Serious: Yes (Other)
  Sender: FDA-Public Use
  Company Number: US-BEH-2022143380

PATIENT
  Age: 65 Year
  Sex: Female

DRUGS (2)
  1. HIZENTRA [Suspect]
     Active Substance: HUMAN IMMUNOGLOBULIN G
     Indication: Immunodeficiency common variable
     Dosage: UNK
     Route: 058
     Dates: start: 1997, end: 1998
  2. HIZENTRA [Suspect]
     Active Substance: HUMAN IMMUNOGLOBULIN G
     Dosage: 10 GRAM, QW
     Route: 058
     Dates: start: 202005

REACTIONS (7)
  - COVID-19 [Unknown]
  - Unevaluable event [Unknown]
  - No adverse event [Unknown]
  - Off label use [Unknown]
  - Sinusitis [Unknown]
  - Asthma [Unknown]
  - Bronchitis [Unknown]

NARRATIVE: CASE EVENT DATE: 20210106
